FAERS Safety Report 7366273-0 (Version None)
Quarter: 2011Q1

REPORT INFORMATION
  Report Type: 
  Country: None (occurrence: None)
  Receive Date: 20110225
  Receipt Date: 20101102
  Transmission Date: 20110831
  Serious: Yes (Hospitalization)
  Sender: FDA-Public Use
  Company Number: 317691

PATIENT
  Age: 65 Year
  Sex: Female
  Weight: 81.6 kg

DRUGS (17)
  1. FOSINOPRIL SODIUM [Concomitant]
  2. PREVACID [Concomitant]
  3. REQUIP [Concomitant]
  4. ASPIRIN [Concomitant]
  5. ACTOS [Concomitant]
  6. CELEBREX [Concomitant]
  7. VICTOZA [Suspect]
     Indication: TYPE 2 DIABETES MELLITUS
     Dosage: 0.6 MG, QD, SUBCUTANEOUS, 1.2 MG, QD, SUBCUTANEOUS, 1.2 MG, QD, SUBCUTANEOUS
     Route: 058
     Dates: start: 20100901
  8. VICTOZA [Suspect]
     Indication: TYPE 2 DIABETES MELLITUS
     Dosage: 0.6 MG, QD, SUBCUTANEOUS, 1.2 MG, QD, SUBCUTANEOUS, 1.2 MG, QD, SUBCUTANEOUS
     Route: 058
     Dates: start: 20100823, end: 20100901
  9. VICTOZA [Suspect]
     Indication: TYPE 2 DIABETES MELLITUS
     Dosage: 0.6 MG, QD, SUBCUTANEOUS, 1.2 MG, QD, SUBCUTANEOUS, 1.2 MG, QD, SUBCUTANEOUS
     Route: 058
     Dates: start: 20100901
  10. GLUCOPHAGE [Concomitant]
  11. ULTRAM [Concomitant]
  12. STRESSTABS /00512101/ (VITAMINS NOS) [Concomitant]
  13. FOLAMIN (CYANOCOBALAMIN, FOLIC ACID, PYRIDOXINE HYDROCHLORIDE) [Concomitant]
  14. PROBIOTIC FEMINA (LACTOBACILLUS ACIDOPHILUS, LACTOBACILLUS BIFIDUS) [Concomitant]
  15. LYRICA [Concomitant]
  16. PRANDIN /01393601/ (REPAGLINIDE, REPAGLINIDE) [Concomitant]
  17. CITRACAL /00471001/ (CALCIUM CITRATE) [Concomitant]

REACTIONS (2)
  - DIARRHOEA [None]
  - BLOOD GLUCOSE INCREASED [None]
